FAERS Safety Report 16685195 (Version 1)
Quarter: 2019Q3

REPORT INFORMATION
  Report Type: Spontaneous
  Country: IR (occurrence: IR)
  Receive Date: 20190808
  Receipt Date: 20190808
  Transmission Date: 20191004
  Serious: Yes (Other)
  Sender: FDA-Public Use
  Company Number: PHHY2019IR179456

PATIENT
  Age: 69 Year
  Sex: Male

DRUGS (7)
  1. ISONIAZID. [Suspect]
     Active Substance: ISONIAZID
     Indication: TUBERCULOMA OF CENTRAL NERVOUS SYSTEM
     Dosage: UNK UNK, QW
     Route: 065
  2. PYRAZINAMIDE. [Suspect]
     Active Substance: PYRAZINAMIDE
     Indication: TUBERCULOMA OF CENTRAL NERVOUS SYSTEM
     Dosage: UNK
     Route: 065
  3. PREDNISONE. [Suspect]
     Active Substance: PREDNISONE
     Indication: TUBERCULOMA OF CENTRAL NERVOUS SYSTEM
     Dosage: 60 MG, QD
     Route: 065
  4. MOXIFLOXACIN. [Suspect]
     Active Substance: MOXIFLOXACIN
     Indication: TUBERCULOMA OF CENTRAL NERVOUS SYSTEM
     Dosage: UNK
     Route: 065
  5. ETHAMBUTOL [Suspect]
     Active Substance: ETHAMBUTOL HYDROCHLORIDE
     Indication: TUBERCULOMA OF CENTRAL NERVOUS SYSTEM
     Dosage: UNK
     Route: 065
  6. PYRIDOXINE [Suspect]
     Active Substance: PYRIDOXINE
     Indication: TUBERCULOMA OF CENTRAL NERVOUS SYSTEM
     Dosage: UNK
     Route: 065
  7. RIFAMPIN. [Suspect]
     Active Substance: RIFAMPIN
     Indication: TUBERCULOMA OF CENTRAL NERVOUS SYSTEM
     Dosage: UNK
     Route: 065

REACTIONS (4)
  - Leukopenia [Recovered/Resolved]
  - Neuropathy peripheral [Recovering/Resolving]
  - Visual impairment [Unknown]
  - Cataract [Unknown]
